FAERS Safety Report 23807956 (Version 2)
Quarter: 2024Q2

REPORT INFORMATION
  Report Type: Spontaneous
  Country: CN (occurrence: CN)
  Receive Date: 20240502
  Receipt Date: 20240508
  Transmission Date: 20240716
  Serious: Yes (Other)
  Sender: FDA-Public Use
  Company Number: CN-MLMSERVICE-20240423-PI036234-00150-1

PATIENT
  Age: 19 Year
  Sex: Male

DRUGS (18)
  1. FLUCONAZOLE [Interacting]
     Active Substance: FLUCONAZOLE
     Indication: Antifungal treatment
     Dosage: UNK
  2. VINCRISTINE [Interacting]
     Active Substance: VINCRISTINE
     Indication: Alveolar rhabdomyosarcoma
     Dosage: (DMAX= 2.0 MG), D1, D8, D15
  3. ARIPIPRAZOLE [Interacting]
     Active Substance: ARIPIPRAZOLE
     Dosage: UNK
  4. ACTINOMYCIN D [Concomitant]
     Active Substance: DACTINOMYCIN
     Indication: Alveolar rhabdomyosarcoma
     Dosage: 0.045 MG/KG (DMAX=2.5 MG), D1, VCR ACT-D+CBP (SECOND LINE TREATMENT)
  5. ACTINOMYCIN D [Concomitant]
     Active Substance: DACTINOMYCIN
     Dosage: 0.045 MG/KG (DMAX=2.5 MG), D1, VCR ACT-D+B CBP (SECOND LINE TREATMENT)
  6. ACTINOMYCIN D [Concomitant]
     Active Substance: DACTINOMYCIN
     Dosage: 0.045MG/KG (DMAX=2.5 MG), VCR ACT-D+B IFO (SECOND LINE TREATMENT)
  7. ACTINOMYCIN D [Concomitant]
     Active Substance: DACTINOMYCIN
     Dosage: 0.045KG (DMAX=2.5 MG), D1, VCR ACT-D CTX (FIRST LINE TREATMENT)
  8. CYCLOPHOSPHAMIDE [Concomitant]
     Active Substance: CYCLOPHOSPHAMIDE
     Indication: Alveolar rhabdomyosarcoma
     Dosage: 1.2 G/M2, D1, VCR ACT-D CTX (FIRST LINE TREATMENT)
  9. CARBOPLATIN [Concomitant]
     Active Substance: CARBOPLATIN
     Indication: Alveolar rhabdomyosarcoma
     Dosage: 560 MG/M2, D1, VCR ACT-D+CBP (SECOND LINE TREATMENT)
  10. CARBOPLATIN [Concomitant]
     Active Substance: CARBOPLATIN
     Dosage: 560 MG/M2, D1, VCR ACT-D+B CBP (SECOND LINE TREATMENT)
  11. BEVACIZUMAB [Concomitant]
     Active Substance: BEVACIZUMAB
     Indication: Alveolar rhabdomyosarcoma
     Dosage: 7.5 MG/KG, D1,VCR ACT-D+B CBP (SECOND LINE TREATMENT)
  12. BEVACIZUMAB [Concomitant]
     Active Substance: BEVACIZUMAB
     Dosage: 7.5 MG/KG, D1, VCR ADR+B VP-16 (SECOND LINE TREATMENT)
  13. BEVACIZUMAB [Concomitant]
     Active Substance: BEVACIZUMAB
     Dosage: 7.5 MG/KG, D1, VCR ACT-D+B IFO (SECOND LINE TREATMENT)
  14. BEVACIZUMAB [Concomitant]
     Active Substance: BEVACIZUMAB
     Dosage: 7.5 MG/KG, D1, VCR ACT-D+CBP (SECOND LINE TREATMENT)
  15. ETOPOSIDE [Concomitant]
     Active Substance: ETOPOSIDE
     Indication: Alveolar rhabdomyosarcoma
     Dosage: 150 MG/M2; D1-D3, VCR ADR+B VP-16 (SECOND LINE TREATMENT)
  16. IRINOTECAN [Concomitant]
     Active Substance: IRINOTECAN
     Indication: Alveolar rhabdomyosarcoma
     Dosage: 50 MG D1-D5, VCR CPT-11 (FIRST LINE TREATMENT)
  17. ADRIAMYCIN [Concomitant]
     Active Substance: DOXORUBICIN HYDROCHLORIDE
     Indication: Alveolar rhabdomyosarcoma
     Dosage: 30 MG/M2; D1-D2, VCR ADR+B VP-16 (SECOND LINE TREATMENT)
  18. IFOSFAMIDE [Concomitant]
     Active Substance: IFOSFAMIDE
     Indication: Alveolar rhabdomyosarcoma
     Dosage: 1.8 G/M2; D1-D5, VCR ACT-D+B IFO (SECOND LINE TREATMENT)

REACTIONS (2)
  - Drug interaction [Recovering/Resolving]
  - Neuropathy peripheral [Recovering/Resolving]
